FAERS Safety Report 11545902 (Version 2)
Quarter: 2015Q4

REPORT INFORMATION
  Report Type: Spontaneous
  Country: GB (occurrence: GB)
  Receive Date: 20150924
  Receipt Date: 20151005
  Transmission Date: 20160304
  Serious: Yes (Disabling, Other)
  Sender: FDA-Public Use
  Company Number: GB-GLAXOSMITHKLINE-GB2015GSK135411

PATIENT
  Sex: Female

DRUGS (3)
  1. ONDANSETRON [Suspect]
     Active Substance: ONDANSETRON
     Indication: GASTROOESOPHAGEAL REFLUX DISEASE
     Route: 042
  2. ONDANSETRON [Interacting]
     Active Substance: ONDANSETRON
     Indication: VOMITING
  3. LANSOPRAZOLE. [Concomitant]
     Active Substance: LANSOPRAZOLE
     Dosage: 30 MG, UNK

REACTIONS (12)
  - Abdominal pain upper [Unknown]
  - Adverse drug reaction [Unknown]
  - Atrial fibrillation [Unknown]
  - Hallucination [Unknown]
  - Cerebrovascular accident [Unknown]
  - Chest pain [Unknown]
  - Ill-defined disorder [Unknown]
  - Aphasia [Unknown]
  - Off label use [Unknown]
  - Loss of consciousness [Unknown]
  - Mental status changes [Unknown]
  - Coagulopathy [Unknown]

NARRATIVE: CASE EVENT DATE: 201503
